FAERS Safety Report 24198337 (Version 2)
Quarter: 2024Q3

REPORT INFORMATION
  Report Type: Spontaneous
  Country: US (occurrence: US)
  Receive Date: 20240812
  Receipt Date: 20240902
  Transmission Date: 20241016
  Serious: No
  Sender: ASTELLAS
  Company Number: US-ASTELLAS-2024US020581

PATIENT
  Age: 69 Year
  Sex: Female

DRUGS (2)
  1. VEOZAH [Suspect]
     Active Substance: FEZOLINETANT
     Indication: Night sweats
     Dosage: 45 MG, UNKNOWN FREQ.
     Route: 065
  2. VEOZAH [Suspect]
     Active Substance: FEZOLINETANT
     Dosage: 45 MG, EVERY OTHER DAY
     Route: 065

REACTIONS (3)
  - Diarrhoea [Unknown]
  - Insomnia [Unknown]
  - Off label use [Unknown]
